FAERS Safety Report 10584041 (Version 1)
Quarter: 2014Q4

REPORT INFORMATION
  Report Type: Spontaneous
  Country: US (occurrence: None)
  Receive Date: 20141113
  Receipt Date: 20141113
  Transmission Date: 20150529
  Serious: Yes (Hospitalization, Disabling, Other)
  Sender: FDA-Public Use
  Company Number: None

PATIENT
  Age: 25 Year
  Sex: Female
  Weight: 55.79 kg

DRUGS (1)
  1. CYMBALTA [Suspect]
     Active Substance: DULOXETINE HYDROCHLORIDE
     Indication: AFFECTIVE DISORDER

REACTIONS (15)
  - Diarrhoea [None]
  - Impaired work ability [None]
  - Mental impairment [None]
  - Hyperhidrosis [None]
  - Muscle twitching [None]
  - Malaise [None]
  - Feeling abnormal [None]
  - Insomnia [None]
  - Irritability [None]
  - Affect lability [None]
  - Anhedonia [None]
  - Anxiety [None]
  - Tremor [None]
  - Suicidal ideation [None]
  - Mood swings [None]

NARRATIVE: CASE EVENT DATE: 20141111
